FAERS Safety Report 10351322 (Version 1)
Quarter: 2014Q3

REPORT INFORMATION
  Report Type: Spontaneous
  Country: RO (occurrence: RO)
  Receive Date: 20140730
  Receipt Date: 20140730
  Transmission Date: 20150326
  Serious: Yes (Hospitalization)
  Sender: FDA-Public Use
  Company Number: RO-VIIV HEALTHCARE LIMITED-B1018734A

PATIENT
  Age: 48 Year
  Sex: Male

DRUGS (8)
  1. INTELENCE [Concomitant]
     Active Substance: ETRAVIRINE
  2. CELSENTRI [Suspect]
     Active Substance: MARAVIROC
     Indication: PRODUCT USED FOR UNKNOWN INDICATION
     Dosage: 300MG FOUR TIMES PER DAY
     Route: 065
     Dates: start: 20130801
  3. ATACAND [Concomitant]
     Active Substance: CANDESARTAN CILEXETIL
  4. LORAZEPAM. [Concomitant]
     Active Substance: LORAZEPAM
  5. ISENTRESS [Concomitant]
     Active Substance: RALTEGRAVIR POTASSIUM
  6. SERTRALINUM [Concomitant]
  7. ASPENTER [Concomitant]
     Active Substance: ASPIRIN
  8. CONCOR [Concomitant]
     Active Substance: BISOPROLOL FUMARATE

REACTIONS (3)
  - Palpitations [Recovering/Resolving]
  - Headache [Recovering/Resolving]
  - Asthenia [Recovering/Resolving]

NARRATIVE: CASE EVENT DATE: 20131201
